FAERS Safety Report 10454575 (Version 1)
Quarter: 2014Q3

REPORT INFORMATION
  Report Type: Spontaneous
  Country: US (occurrence: US)
  Receive Date: 20140915
  Receipt Date: 20140915
  Transmission Date: 20150326
  Serious: No
  Sender: FDA-Public Use
  Company Number: US-PFIZER INC-2014254293

PATIENT
  Sex: Female
  Weight: 136.5 kg

DRUGS (1)
  1. LYRICA [Suspect]
     Active Substance: PREGABALIN
     Dosage: UNK
     Dates: start: 201408

REACTIONS (9)
  - Dysphagia [Unknown]
  - Panic attack [Unknown]
  - Anger [Unknown]
  - Aggression [Unknown]
  - Agitation [Unknown]
  - Vision blurred [Unknown]
  - Musculoskeletal discomfort [Unknown]
  - Personality change [Unknown]
  - Abnormal behaviour [Unknown]

NARRATIVE: CASE EVENT DATE: 2014
